FAERS Safety Report 12104509 (Version 2)
Quarter: 2016Q1

REPORT INFORMATION
  Report Type: Spontaneous
  Country: JP (occurrence: JP)
  Receive Date: 20160223
  Receipt Date: 20160330
  Transmission Date: 20160526
  Serious: Yes (Hospitalization, Other)
  Sender: FDA-Public Use
  Company Number: JP-PFIZER INC-2016021425

PATIENT
  Age: 88 Year
  Sex: Female
  Weight: 50 kg

DRUGS (18)
  1. OLMETEC [Concomitant]
     Active Substance: OLMESARTAN MEDOXOMIL
     Dosage: 40 MG, 1X/DAY
     Route: 048
  2. MECOBALAMIN [Concomitant]
     Active Substance: METHYLCOBALAMIN
     Dosage: 500 UG, 3X/DAY
     Route: 048
  3. LYRICA [Suspect]
     Active Substance: PREGABALIN
     Indication: POST HERPETIC NEURALGIA
     Dosage: 50 MG, 2X/DAY
     Route: 048
     Dates: start: 20131217, end: 20160107
  4. TRAMCET [Suspect]
     Active Substance: ACETAMINOPHEN\TRAMADOL
     Indication: BACK PAIN
     Dosage: 1 DF, 2X/DAY
     Route: 048
     Dates: start: 20140308
  5. BAYASPIRIN [Concomitant]
     Active Substance: ASPIRIN
     Dosage: 100 MG, 1X/DAY
     Route: 048
  6. PRAVASTATIN [Concomitant]
     Active Substance: PRAVASTATIN\PRAVASTATIN SODIUM
     Dosage: 5 MG, 1X/DAY
     Route: 048
  7. JUVELA N [Concomitant]
     Active Substance: TOCOPHERYL NICOTINATE, D-.ALPHA.
     Dosage: 100 MG, 3X/DAY
     Route: 048
  8. EBRANTIL [Concomitant]
     Active Substance: URAPIDIL
     Dosage: 15 MG, 2X/DAY
     Route: 048
     Dates: start: 20160108
  9. OPALMON [Concomitant]
     Active Substance: LIMAPROST
  10. LIMAPROST ALFADEX [Concomitant]
     Active Substance: LIMAPROST
     Dosage: 5 UG, 3X/DAY
     Route: 048
     Dates: start: 20160108
  11. LYRICA [Suspect]
     Active Substance: PREGABALIN
     Indication: PAIN IN EXTREMITY
     Dosage: 75 MG, 2X/DAY
     Route: 048
     Dates: start: 20160108, end: 20160112
  12. LANSOPRAZOLE. [Concomitant]
     Active Substance: LANSOPRAZOLE
     Dosage: 15 MG, 1X/DAY
     Route: 048
  13. METHACHOLINE. [Concomitant]
     Active Substance: METHACHOLINE
  14. MAGLAX [Concomitant]
     Active Substance: MAGNESIUM OXIDE
     Dosage: 330 MG, 3X/DAY
     Route: 048
  15. THEOLONG [Concomitant]
     Active Substance: THEOPHYLLINE ANHYDROUS
     Dosage: 100 MG, 2X/DAY
     Route: 048
  16. AMLODIPINE [Concomitant]
     Active Substance: AMLODIPINE BESYLATE
     Dosage: 5 MG, 1X/DAY
     Route: 048
  17. LYRICA [Suspect]
     Active Substance: PREGABALIN
     Dosage: UNK
  18. BESACOLIN [Concomitant]
     Active Substance: BETHANECHOL CHLORIDE
     Dosage: 0.2 G, 3X/DAY
     Route: 048
     Dates: start: 20160108

REACTIONS (7)
  - Arthralgia [Unknown]
  - Hallucination, visual [Recovering/Resolving]
  - Pain in extremity [Unknown]
  - Urinary retention [Recovered/Resolved]
  - Upper respiratory tract inflammation [Unknown]
  - Glomerular filtration rate decreased [Recovering/Resolving]
  - Pyrexia [Recovered/Resolved]

NARRATIVE: CASE EVENT DATE: 20160107
